FAERS Safety Report 9925829 (Version 1)
Quarter: 2014Q1

REPORT INFORMATION
  Report Type: Spontaneous
  Country: LV (occurrence: LV)
  Receive Date: 20140226
  Receipt Date: 20140226
  Transmission Date: 20141002
  Serious: Yes (Hospitalization)
  Sender: FDA-Public Use
  Company Number: LV-B.I. PHARMACEUTICALS,INC./RIDGEFIELD-2014-BI-07716LV

PATIENT
  Age: 43 Year
  Sex: Male

DRUGS (2)
  1. MOVALIS [Suspect]
     Indication: PRODUCT USED FOR UNKNOWN INDICATION
     Dosage: 15 MG
     Route: 048
     Dates: start: 20140124, end: 20140124
  2. MYDOCALM [Suspect]
     Indication: PRODUCT USED FOR UNKNOWN INDICATION
     Dosage: 150 MG
     Route: 048
     Dates: start: 20140124, end: 20140124

REACTIONS (4)
  - Face oedema [Unknown]
  - Erythema [Unknown]
  - Rash [Unknown]
  - Hypotension [Unknown]
